FAERS Safety Report 8910953 (Version 1)
Quarter: 2012Q4

REPORT INFORMATION
  Report Type: 
  Country: JP (occurrence: JP)
  Receive Date: 20121116
  Receipt Date: 20121116
  Transmission Date: 20130627
  Serious: Yes (Hospitalization)
  Sender: FDA-Public Use
  Company Number: JP-OTSUKA-JP-2012-16520

PATIENT
  Age: 66 Year
  Sex: Male

DRUGS (4)
  1. PLETAAL [Suspect]
     Indication: PERIPHERAL ARTERIAL OCCLUSIVE DISEASE
     Dosage: 200 Mg milligram(s), daily dose
     Route: 048
  2. PLETAAL [Suspect]
     Dosage: 200 Mg milligram(s), daily dose
     Route: 048
  3. WARFARIN POTASSIUM [Concomitant]
     Dosage: 3.5 Mg milligram(s), daily dose
     Route: 048
  4. WARFARIN POTASSIUM [Concomitant]
     Dosage: 3.5 Mg milligram(s), daily dose
     Route: 048

REACTIONS (3)
  - Haematemesis [Recovered/Resolved]
  - Gastrooesophageal reflux disease [Recovered/Resolved]
  - Melaena [Recovered/Resolved]
